FAERS Safety Report 8837839 (Version 2)
Quarter: 2013Q2

REPORT INFORMATION
  Report Type: Spontaneous
  Country: US (occurrence: US)
  Receive Date: 20121012
  Receipt Date: 20130625
  Transmission Date: 20140414
  Serious: No
  Sender: FDA-Public Use
  Company Number: US-009507513-1210USA004395

PATIENT
  Sex: Female

DRUGS (6)
  1. PEGINTRON [Suspect]
     Indication: HEPATITIS C
     Dosage: UNK
     Dates: start: 20020101, end: 20030101
  2. REBETOL [Suspect]
     Indication: HEPATITIS C
     Dosage: UNK
     Dates: start: 20020101, end: 20021206
  3. REBETOL [Suspect]
     Dosage: UNK
     Dates: start: 20030101
  4. REBETOL [Suspect]
     Dosage: UNK
     Dates: start: 20120706
  5. INTERFERON (UNSPECIFIED) [Suspect]
     Indication: HEPATITIS C
     Dosage: UNK
     Dates: start: 20020104, end: 20021206
  6. INTERFERON (UNSPECIFIED) [Suspect]
     Dosage: UNK
     Dates: start: 20120706

REACTIONS (3)
  - Injection site reaction [Unknown]
  - Drug ineffective [Unknown]
  - Therapeutic response decreased [Unknown]
